FAERS Safety Report 9695648 (Version 1)
Quarter: 2013Q4

REPORT INFORMATION
  Report Type: Spontaneous
  Country: US (occurrence: None)
  Receive Date: 20131118
  Receipt Date: 20131118
  Transmission Date: 20140711
  Serious: Yes (Other)
  Sender: FDA-Public Use
  Company Number: None

PATIENT
  Age: 56 None
  Sex: Female

DRUGS (2)
  1. EVISTA [Suspect]
     Indication: BONE LOSS
  2. EVISTA [Suspect]
     Indication: MENOPAUSAL DISORDER

REACTIONS (4)
  - Insomnia [None]
  - Agitation [None]
  - Gastrooesophageal reflux disease [None]
  - Impaired work ability [None]
